FAERS Safety Report 5533945-X (Version None)
Quarter: 2007Q4

REPORT INFORMATION
  Report Type: 
  Country: None (occurrence: None)
  Receive Date: 20071129
  Receipt Date: 20071120
  Transmission Date: 20080405
  Serious: Yes (Hospitalization, Other)
  Sender: FDA-Public Use
  Company Number: 17877

PATIENT
  Age: 9 Year
  Sex: Male

DRUGS (3)
  1. BLEOMYCIN [Suspect]
     Indication: CRANIOPHARYNGIOMA
     Dosage: 3 MG 3/WK OTHER
     Route: 050
  2. BLEOMYCIN [Suspect]
     Dosage: 3 MG WEEKLY OTHER
     Route: 050
  3. SODIUM CHLORIDE 0.9% [Concomitant]

REACTIONS (12)
  - BRAIN OEDEMA [None]
  - BRAIN SCAN ABNORMAL [None]
  - DIABETES INSIPIDUS [None]
  - FATIGUE [None]
  - HYPOTHALAMO-PITUITARY DISORDER [None]
  - INJECTION SITE EXTRAVASATION [None]
  - MEMORY IMPAIRMENT [None]
  - SCAR [None]
  - TEMPERATURE INTOLERANCE [None]
  - THIRST DECREASED [None]
  - VISUAL PATHWAY DISORDER [None]
  - WEIGHT INCREASED [None]
